FAERS Safety Report 7243440-8 (Version None)
Quarter: 2011Q1

REPORT INFORMATION
  Report Type: 
  Country: None (occurrence: None)
  Receive Date: 20110125
  Receipt Date: 20110118
  Transmission Date: 20110831
  Serious: Yes (Hospitalization)
  Sender: FDA-Public Use
  Company Number: JP-ABBOTT-11P-087-0698033-00

PATIENT
  Sex: Male
  Weight: 32 kg

DRUGS (2)
  1. ACETAMINOPHEN [Concomitant]
     Indication: PYREXIA
  2. CLARITH [Suspect]
     Indication: RESPIRATORY TRACT INFECTION
     Route: 048
     Dates: start: 20101220, end: 20101224

REACTIONS (1)
  - PANCYTOPENIA [None]
